FAERS Safety Report 4406820-1 (Version None)
Quarter: 2004Q3

REPORT INFORMATION
  Report Type: 
  Country: None (occurrence: None)
  Receive Date: 20040715
  Receipt Date: 20040630
  Transmission Date: 20050211
  Serious: Yes (Hospitalization)
  Sender: FDA-Public Use
  Company Number: GB-JNJFOC-20030905016

PATIENT
  Age: 74 Year
  Sex: Male

DRUGS (8)
  1. REMICADE [Suspect]
     Indication: RHEUMATOID ARTHRITIS
     Dosage: 255 MG, INTRAVENOUS
     Route: 042
     Dates: start: 20030206
  2. PREDNISOLONE [Concomitant]
  3. METHOTREXATE [Concomitant]
  4. FOLIC ACID [Concomitant]
  5. CALCICHEW D3 (CALCIUM CARBONATE) [Concomitant]
  6. DILTIAZEM [Concomitant]
  7. SOTALOL HCL [Concomitant]
  8. DIGOXIN [Concomitant]

REACTIONS (1)
  - NO ADVERSE DRUG EFFECT [None]
